FAERS Safety Report 4439843-7 (Version None)
Quarter: 2004Q3

REPORT INFORMATION
  Report Type: 
  Country: None (occurrence: None)
  Receive Date: 20040902
  Receipt Date: 20030825
  Transmission Date: 20050211
  Serious: Yes (Disabling)
  Sender: FDA-Public Use
  Company Number: US-ROCHE-345477

PATIENT
  Age: 18 Year
  Sex: Male
  Weight: 95.3 kg

DRUGS (3)
  1. ACCUTANE [Suspect]
     Route: 048
     Dates: start: 20001212, end: 20010119
  2. ACCUTANE [Suspect]
     Route: 048
     Dates: start: 20000823, end: 20000915
  3. ACCUTANE [Suspect]
     Route: 048
     Dates: start: 20000915, end: 20001212

REACTIONS (12)
  - ACNE [None]
  - BLOOD CHOLESTEROL INCREASED [None]
  - BLOOD TRIGLYCERIDES INCREASED [None]
  - COLITIS ULCERATIVE [None]
  - CROHN'S DISEASE [None]
  - DRY SKIN [None]
  - GASTROINTESTINAL HAEMORRHAGE [None]
  - HEPATOCELLULAR DAMAGE [None]
  - ILEITIS [None]
  - LIP DRY [None]
  - NEUTROPHIL COUNT DECREASED [None]
  - PERIRECTAL ABSCESS [None]
